FAERS Safety Report 10901064 (Version 1)
Quarter: 2015Q1

REPORT INFORMATION
  Report Type: Spontaneous
  Country: US (occurrence: None)
  Receive Date: 20150303
  Receipt Date: 20150303
  Transmission Date: 20150721
  Serious: Yes (Other)
  Sender: FDA-Public Use
  Company Number: BTG00208

PATIENT
  Age: 15 Year
  Sex: Male
  Weight: 48 kg

DRUGS (3)
  1. VORAXAZE [Suspect]
     Active Substance: GLUCARPIDASE
     Indication: TOXICITY TO VARIOUS AGENTS
     Dosage: 2000 UNITS, SINGLE
     Dates: start: 20150211
  2. VORAXAZE [Suspect]
     Active Substance: GLUCARPIDASE
     Indication: OVERDOSE
     Dosage: 2000 UNITS, SINGLE
     Dates: start: 20150211
  3. METHOTREXATE (METHOTREXATE SODIUM) [Suspect]
     Active Substance: METHOTREXATE SODIUM
     Indication: ACUTE LYMPHOCYTIC LEUKAEMIA RECURRENT

REACTIONS (4)
  - Drug effect incomplete [None]
  - Underdose [None]
  - Drug level decreased [None]
  - Blood creatinine increased [None]
